FAERS Safety Report 11824637 (Version 1)
Quarter: 2015Q4

REPORT INFORMATION
  Report Type: Spontaneous
  Country: US (occurrence: US)
  Receive Date: 20151210
  Receipt Date: 20151210
  Transmission Date: 20160305
  Serious: Yes (Death, Hospitalization)
  Sender: FDA-Public Use
  Company Number: US-INCYTE CORPORATION-2015IN006472

PATIENT
  Age: 63 Year
  Sex: Male

DRUGS (1)
  1. JAKAFI [Suspect]
     Active Substance: RUXOLITINIB
     Indication: MYELOFIBROSIS
     Dosage: UNK
     Route: 048

REACTIONS (4)
  - Disease progression [Not Recovered/Not Resolved]
  - Splenomegaly [Not Recovered/Not Resolved]
  - Acute myeloid leukaemia [Fatal]
  - General physical health deterioration [Not Recovered/Not Resolved]
